FAERS Safety Report 8259691 (Version 7)
Quarter: 2013Q3

REPORT INFORMATION
  Report Type: Report from Study
  Country: IT (occurrence: IT)
  Receive Date: 20111122
  Receipt Date: 20130917
  Transmission Date: 20140515
  Serious: Yes (Life-Threatening, Other)
  Sender: FDA-Public Use
  Company Number: IT-CELGENEUS-083-21880-11112043

PATIENT
  Age: 75 Year
  Sex: Female
  Weight: 61 kg

DRUGS (13)
  1. REVLIMID [Suspect]
     Indication: PLASMA CELL MYELOMA
     Route: 048
     Dates: start: 20091013, end: 20091026
  2. REVLIMID [Suspect]
     Dosage: 10 MILLIGRAM
     Route: 048
     Dates: start: 20091127, end: 20110609
  3. REVLIMID [Suspect]
     Dosage: 15 MILLIGRAM
     Route: 048
     Dates: start: 20110617, end: 20110901
  4. REVLIMID [Suspect]
     Route: 048
     Dates: start: 20110909, end: 20110929
  5. DEXAMETHASONE [Concomitant]
     Indication: PLASMA CELL MYELOMA
     Route: 048
     Dates: start: 20091016
  6. DEXAMETHASONE [Concomitant]
     Route: 048
     Dates: start: 201110
  7. ATENOLOL [Concomitant]
     Indication: HYPERTENSION
     Dosage: 25 MILLIGRAM
     Route: 048
  8. OMEPRAZOLE [Concomitant]
     Indication: HYPERCHLORHYDRIA
     Dosage: 20 MILLIGRAM
     Route: 048
  9. ASA [Concomitant]
     Indication: THROMBOSIS PROPHYLAXIS
     Dosage: 100 MILLIGRAM
     Route: 048
     Dates: start: 20091013
  10. PAMIDRONATE [Concomitant]
     Indication: OSTEOLYSIS
     Dosage: 3 MILLIGRAM
     Route: 065
     Dates: start: 2007
  11. ARANESP [Concomitant]
     Indication: ANAEMIA
     Dosage: 214.2857 MICROGRAM
     Route: 065
  12. AMITRIPTILINA [Concomitant]
     Indication: ANXIOLYTIC THERAPY
     Dosage: 7 GRAM
     Route: 048
  13. FERROFOLIC [Concomitant]
     Indication: ANAEMIA
     Dosage: 1 GRAM
     Route: 065

REACTIONS (1)
  - Myelodysplastic syndrome [Not Recovered/Not Resolved]
